FAERS Safety Report 10572317 (Version 1)
Quarter: 2014Q4

REPORT INFORMATION
  Report Type: Spontaneous
  Country: IN (occurrence: IN)
  Receive Date: 20141109
  Receipt Date: 20141109
  Transmission Date: 20150529
  Serious: Yes (Death, Hospitalization, Other)
  Sender: FDA-Public Use
  Company Number: IN-PFIZER INC-2014305850

PATIENT
  Age: 60 Year
  Sex: Female

DRUGS (1)
  1. SUTENT [Suspect]
     Active Substance: SUNITINIB MALATE
     Indication: METASTATIC RENAL CELL CARCINOMA
     Dosage: 37.5 MG, 1X/DAY
     Route: 048
     Dates: start: 20140901

REACTIONS (5)
  - Furuncle [Not Recovered/Not Resolved]
  - Metastatic renal cell carcinoma [Fatal]
  - Haematemesis [Not Recovered/Not Resolved]
  - Pain [Unknown]
  - Disease progression [Fatal]
